FAERS Safety Report 7053340-4 (Version None)
Quarter: 2010Q4

REPORT INFORMATION
  Report Type: 
  Country: None (occurrence: None)
  Receive Date: 20101014
  Receipt Date: 20101005
  Transmission Date: 20110411
  Serious: Yes (Hospitalization)
  Sender: FDA-Public Use
  Company Number: 017055

PATIENT
  Sex: Male
  Weight: 59.1 kg

DRUGS (3)
  1. CIMZIA [Suspect]
     Indication: CROHN'S DISEASE
     Dosage: (400 MG 1X/2 WEEKS, NBR OF DOSES: 1 SUBCUTANEOUS)
     Route: 058
     Dates: start: 20100722, end: 20100808
  2. PREDNISONE [Concomitant]
  3. LANSOPRAZOLE [Concomitant]

REACTIONS (4)
  - APPENDICITIS [None]
  - CONDITION AGGRAVATED [None]
  - CROHN'S DISEASE [None]
  - ILEUS [None]
